FAERS Safety Report 20672090 (Version 1)
Quarter: 2022Q2

REPORT INFORMATION
  Report Type: Spontaneous
  Country: US (occurrence: US)
  Receive Date: 20220405
  Receipt Date: 20220405
  Transmission Date: 20220721
  Serious: No
  Sender: FDA-Public Use
  Company Number: US-TEVA-2022-US-2017333

PATIENT
  Sex: Female

DRUGS (1)
  1. PRAVASTATIN SODIUM [Suspect]
     Active Substance: PRAVASTATIN SODIUM
     Dosage: 80 MILLIGRAM DAILY;
     Route: 065

REACTIONS (2)
  - COVID-19 [Unknown]
  - Product commingling [Unknown]
